FAERS Safety Report 15764359 (Version 7)
Quarter: 2019Q2

REPORT INFORMATION
  Report Type: Report from Study
  Country: CN (occurrence: CN)
  Receive Date: 20181227
  Receipt Date: 20190430
  Transmission Date: 20190711
  Serious: Yes (Hospitalization, Disabling)
  Sender: FDA-Public Use
  Company Number: CN-ROCHE-2234509

PATIENT
  Age: 63 Year
  Sex: Male
  Weight: 68 kg

DRUGS (7)
  1. RITUXIMAB. [Suspect]
     Active Substance: RITUXIMAB
     Indication: CHRONIC LYMPHOCYTIC LEUKAEMIA
     Dosage: C1D1, INJECTION, 100 MG/10ML.
     Route: 065
     Dates: start: 20171118, end: 20171118
  2. AT-101 [Suspect]
     Active Substance: UNSPECIFIED INGREDIENT
     Dosage: DAY 1-21 IN EVERY 28 DAYS
     Route: 048
     Dates: start: 20180510, end: 20181009
  3. BUSPIRONE HYDROCHLORIDE. [Concomitant]
     Active Substance: BUSPIRONE HYDROCHLORIDE
     Indication: ANXIETY
     Route: 065
     Dates: start: 20180315, end: 20180930
  4. ENTECAVIR. [Concomitant]
     Active Substance: ENTECAVIR
     Indication: HEPATITIS B
     Route: 065
     Dates: start: 20171122, end: 20180930
  5. AT-101 [Suspect]
     Active Substance: UNSPECIFIED INGREDIENT
     Indication: CHRONIC LYMPHOCYTIC LEUKAEMIA
     Dosage: DAY 1-21 IN EVERY 28 DAYS
     Route: 048
     Dates: start: 20171118, end: 20180425
  6. RITUXIMAB. [Suspect]
     Active Substance: RITUXIMAB
     Dosage: C2D1?INJECTION, 100 MG/10ML
     Route: 042
     Dates: start: 20171215, end: 20171215
  7. RITUXIMAB. [Suspect]
     Active Substance: RITUXIMAB
     Dosage: C3D1?INJECTION, 100 MG/10ML
     Route: 042
     Dates: start: 20180112, end: 20180112

REACTIONS (4)
  - Off label use [Unknown]
  - Neuropathy peripheral [Recovering/Resolving]
  - Product use in unapproved indication [Unknown]
  - Vomiting [Recovered/Resolved]

NARRATIVE: CASE EVENT DATE: 20180405
